FAERS Safety Report 12988039 (Version 2)
Quarter: 2016Q4

REPORT INFORMATION
  Report Type: Spontaneous
  Country: JP (occurrence: JP)
  Receive Date: 20161130
  Receipt Date: 20161212
  Transmission Date: 20170207
  Serious: Yes (Hospitalization)
  Sender: FDA-Public Use
  Company Number: JP-BAUSCH-BL-2016-029951

PATIENT
  Age: 70 Year
  Sex: Female

DRUGS (4)
  1. HERBESSER [Suspect]
     Active Substance: DILTIAZEM HYDROCHLORIDE
     Indication: PRINZMETAL ANGINA
     Route: 048
  2. HERBESSER [Suspect]
     Active Substance: DILTIAZEM HYDROCHLORIDE
     Indication: HYPERTROPHIC CARDIOMYOPATHY
  3. TELMISARTAN. [Suspect]
     Active Substance: TELMISARTAN
     Indication: HYPERTROPHIC CARDIOMYOPATHY
  4. TELMISARTAN. [Suspect]
     Active Substance: TELMISARTAN
     Indication: PRINZMETAL ANGINA
     Route: 048

REACTIONS (1)
  - Hypertrophic cardiomyopathy [Recovering/Resolving]
